FAERS Safety Report 20178623 (Version 2)
Quarter: 2022Q1

REPORT INFORMATION
  Report Type: Report from Study
  Country: US (occurrence: US)
  Receive Date: 20211214
  Receipt Date: 20220107
  Transmission Date: 20220423
  Serious: No
  Sender: FDA-Public Use
  Company Number: US-Taiho Oncology Inc-EU-2021-03891

PATIENT
  Sex: Female

DRUGS (2)
  1. LONSURF [Suspect]
     Active Substance: TIPIRACIL HYDROCHLORIDE\TRIFLURIDINE
     Indication: Colorectal cancer stage IV
     Dosage: CYCLE NUMBER 1.
     Route: 048
     Dates: start: 20210617
  2. LONSURF [Suspect]
     Active Substance: TIPIRACIL HYDROCHLORIDE\TRIFLURIDINE
     Dosage: CYCLE UNKNOWN
     Route: 048
     Dates: end: 20210809

REACTIONS (1)
  - Disease progression [Unknown]
